FAERS Safety Report 20140861 (Version 3)
Quarter: 2021Q4

REPORT INFORMATION
  Report Type: Spontaneous
  Country: CH (occurrence: CH)
  Receive Date: 20211202
  Receipt Date: 20211213
  Transmission Date: 20220303
  Serious: Yes (Death, Hospitalization, Other)
  Sender: FDA-Public Use
  Company Number: CH-009507513-2111CHE010455

PATIENT
  Age: 77 Year
  Sex: Male

DRUGS (2)
  1. KEYTRUDA [Suspect]
     Active Substance: PEMBROLIZUMAB
     Indication: Hormone-refractory prostate cancer
     Dosage: UNK
     Dates: start: 20190314, end: 20201008
  2. CYCLOSPORINE [Suspect]
     Active Substance: CYCLOSPORINE
     Dosage: UNK

REACTIONS (30)
  - Malignant neoplasm progression [Fatal]
  - Immune-mediated cytopenia [Unknown]
  - Immune thrombocytopenia [Unknown]
  - Cerebral infarction [Unknown]
  - Vertebrobasilar stroke [Unknown]
  - Ischaemic stroke [Unknown]
  - Retinopathy of prematurity [Unknown]
  - Pancytopenia [Unknown]
  - Aplastic anaemia [Unknown]
  - Neutropenia [Unknown]
  - Cerebellar haemorrhage [Unknown]
  - Acute kidney injury [Unknown]
  - Renal failure [Unknown]
  - Immune-mediated hepatitis [Recovering/Resolving]
  - Spinal cord compression [Unknown]
  - Neuropathy peripheral [Unknown]
  - Pneumonitis [Unknown]
  - Vitamin B12 deficiency [Unknown]
  - Contusion [Unknown]
  - Back pain [Unknown]
  - Nasopharyngitis [Recovered/Resolved]
  - Nasopharyngitis [Unknown]
  - Oedema peripheral [Recovering/Resolving]
  - Abdominal distension [Unknown]
  - Weight decreased [Unknown]
  - Eating disorder [Unknown]
  - Sensory disturbance [Unknown]
  - Macroangiopathy [Unknown]
  - Skin discolouration [Unknown]
  - Peripheral swelling [Unknown]

NARRATIVE: CASE EVENT DATE: 20190401
